FAERS Safety Report 21132531 (Version 1)
Quarter: 2022Q3

REPORT INFORMATION
  Report Type: Spontaneous
  Country: HR (occurrence: HR)
  Receive Date: 20220726
  Receipt Date: 20220726
  Transmission Date: 20221027
  Serious: Yes (Other)
  Sender: FDA-Public Use
  Company Number: None

PATIENT
  Age: 21 Year
  Sex: Male

DRUGS (4)
  1. OLANZAPINE [Suspect]
     Active Substance: OLANZAPINE
     Indication: Obsessive thoughts
     Dosage: 5 MG, QD
     Route: 048
     Dates: start: 20220620
  2. OLANZAPINE [Suspect]
     Active Substance: OLANZAPINE
     Indication: Obsessive-compulsive disorder
  3. FEVARIN [Concomitant]
     Active Substance: FLUVOXAMINE MALEATE
     Indication: Obsessive thoughts
     Dosage: 200 MG, QD (1/2, 0, 1 1/2)
     Route: 048
     Dates: start: 20220325
  4. FEVARIN [Concomitant]
     Active Substance: FLUVOXAMINE MALEATE
     Indication: Obsessive-compulsive disorder

REACTIONS (2)
  - Arrhythmia [Recovered/Resolved]
  - Chest pain [Recovered/Resolved]

NARRATIVE: CASE EVENT DATE: 20220620
